FAERS Safety Report 15800400 (Version 2)
Quarter: 2019Q2

REPORT INFORMATION
  Report Type: Spontaneous
  Country: US (occurrence: US)
  Receive Date: 20190108
  Receipt Date: 20190412
  Transmission Date: 20190711
  Serious: No
  Sender: FDA-Public Use
  Company Number: US-UPSHER-SMITH LABORATORIES, LLC-2018USL00646

PATIENT
  Age: 2 Year
  Sex: Female
  Weight: 17.9 kg

DRUGS (2)
  1. VIGADRONE [Suspect]
     Active Substance: VIGABATRIN
     Indication: INFANTILE SPASMS
     Dosage: UNK, 2X/DAY
     Route: 048
     Dates: start: 20181102, end: 20181107
  2. VIGADRONE [Suspect]
     Active Substance: VIGABATRIN
     Dosage: 750 MG, 2X/DAY
     Route: 048
     Dates: start: 20181108

REACTIONS (5)
  - Somnolence [Recovered/Resolved]
  - Terminal insomnia [Not Recovered/Not Resolved]
  - Middle insomnia [Not Recovered/Not Resolved]
  - Fatigue [Recovered/Resolved]
  - Insomnia [Not Recovered/Not Resolved]

NARRATIVE: CASE EVENT DATE: 2018
